FAERS Safety Report 5274165-6 (Version None)
Quarter: 2007Q1

REPORT INFORMATION
  Report Type: 
  Country: None (occurrence: None)
  Receive Date: 20070323
  Receipt Date: 20070315
  Transmission Date: 20070707
  Serious: Yes (Hospitalization)
  Sender: FDA-Public Use
  Company Number: US-SHR-US-2007-009318

PATIENT
  Age: 27 Year
  Sex: Female

DRUGS (3)
  1. MIRENA [Suspect]
     Indication: CONTRACEPTION
     Dosage: 20 A?G/DAY, CONT
     Route: 015
     Dates: start: 20050101
  2. PROZAC [Concomitant]
  3. NORTRIPTYLINE HCL [Concomitant]

REACTIONS (5)
  - BACK PAIN [None]
  - CERVIX DISORDER [None]
  - FATIGUE [None]
  - PYELONEPHRITIS [None]
  - RENAL ABSCESS [None]
